FAERS Safety Report 18839990 (Version 1)
Quarter: 2021Q1

REPORT INFORMATION
  Report Type: Report from Study
  Country: US (occurrence: US)
  Receive Date: 20210204
  Receipt Date: 20210204
  Transmission Date: 20210419
  Serious: No
  Sender: FDA-Public Use
  Company Number: US-EXELIXIS-CABO-20033041

PATIENT
  Age: 82 Year
  Sex: Male

DRUGS (16)
  1. CABOMETYX [Suspect]
     Active Substance: CABOZANTINIB S-MALATE
     Dosage: 20 MG QD
     Dates: start: 20201110
  2. GABAPENTIN. [Concomitant]
     Active Substance: GABAPENTIN
  3. CABOMETYX [Suspect]
     Active Substance: CABOZANTINIB S-MALATE
     Dosage: 40 MG
     Dates: start: 20200922, end: 20201025
  4. ASPIRIN. [Concomitant]
     Active Substance: ASPIRIN
  5. NITROSTAT [Concomitant]
     Active Substance: NITROGLYCERIN
  6. OMEPRAZOLE. [Concomitant]
     Active Substance: OMEPRAZOLE
  7. ONDANSETRON [Concomitant]
     Active Substance: ONDANSETRON
  8. MEPRON [Concomitant]
     Active Substance: ATOVAQUONE
  9. SENNA AND DOCUSATE [Concomitant]
  10. FLOMAX [Concomitant]
     Active Substance: TAMSULOSIN HYDROCHLORIDE
  11. FAMOTIDINE. [Concomitant]
     Active Substance: FAMOTIDINE
  12. CABOMETYX [Suspect]
     Active Substance: CABOZANTINIB S-MALATE
     Indication: RENAL CELL CARCINOMA
     Dosage: 60 MG, QD
     Dates: start: 202008
  13. OXYCODONE [Concomitant]
     Active Substance: OXYCODONE
  14. MAGIC MOUTHWASH [Concomitant]
     Active Substance: DIPHENHYDRAMINE HYDROCHLORIDE\LIDOCAINE HYDROCHLORIDE\NYSTATIN
  15. COLACE [Concomitant]
     Active Substance: DOCUSATE SODIUM
  16. MORPHINE [Concomitant]
     Active Substance: MORPHINE

REACTIONS (14)
  - Decreased appetite [Recovering/Resolving]
  - Stomatitis [Recovering/Resolving]
  - Asthenia [Recovering/Resolving]
  - Hypotension [Unknown]
  - Weight decreased [Recovering/Resolving]
  - Ageusia [Recovering/Resolving]
  - Abdominal pain upper [Not Recovered/Not Resolved]
  - White blood cell count decreased [Not Recovered/Not Resolved]
  - Skin exfoliation [Unknown]
  - Constipation [Recovered/Resolved]
  - Mucosal inflammation [Unknown]
  - Erythema [Unknown]
  - Pain in extremity [Recovering/Resolving]
  - Nausea [Not Recovered/Not Resolved]

NARRATIVE: CASE EVENT DATE: 20201028
